FAERS Safety Report 17460417 (Version 1)
Quarter: 2020Q1

REPORT INFORMATION
  Report Type: Spontaneous
  Country: US (occurrence: US)
  Receive Date: 20200225
  Receipt Date: 20200225
  Transmission Date: 20200409
  Serious: Yes (Other)
  Sender: FDA-Public Use
  Company Number: US-BAXTER-2020BAX003833

PATIENT
  Age: 68 Year
  Sex: Male

DRUGS (2)
  1. CEFAZOLIN INJECTION [Suspect]
     Active Substance: CEFAZOLIN
     Indication: SEPSIS
     Route: 065
  2. CEFAZOLIN INJECTION [Suspect]
     Active Substance: CEFAZOLIN
     Indication: STAPHYLOCOCCAL ABSCESS

REACTIONS (1)
  - Drug-induced liver injury [Recovered/Resolved]
